FAERS Safety Report 6737865-4 (Version None)
Quarter: 2010Q2

REPORT INFORMATION
  Report Type: 
  Country: None (occurrence: None)
  Receive Date: 20100521
  Receipt Date: 20100521
  Transmission Date: 20101027
  Serious: Yes (Hospitalization)
  Sender: FDA-Public Use
  Company Number: None

PATIENT
  Sex: Male
  Weight: 103 kg

DRUGS (2)
  1. CARBOPLATIN [Suspect]
     Dosage: 530 MG
     Dates: end: 20100426
  2. ETOPOSIDE [Suspect]
     Dosage: 627 MG
     Dates: end: 20100428

REACTIONS (7)
  - GLYCOSYLATED HAEMOGLOBIN INCREASED [None]
  - HYPONATRAEMIA [None]
  - HYPOVOLAEMIA [None]
  - NEUTROPHIL COUNT ABNORMAL [None]
  - ORTHOSTATIC HYPOTENSION [None]
  - PLATELET COUNT ABNORMAL [None]
  - TYPE 2 DIABETES MELLITUS [None]
